FAERS Safety Report 7224660-5 (Version None)
Quarter: 2011Q1

REPORT INFORMATION
  Report Type: 
  Country: None (occurrence: None)
  Receive Date: 20110113
  Receipt Date: 20110105
  Transmission Date: 20110831
  Serious: Yes (Hospitalization, Other)
  Sender: FDA-Public Use
  Company Number: RO-NOVOPROD-321158

PATIENT
  Age: 3 Year
  Sex: Male
  Weight: 10 kg

DRUGS (1)
  1. NORDITROPIN [Suspect]
     Indication: 18Q MINUS SYNDROME
     Dosage: 0.45 MG, QD

REACTIONS (4)
  - PSYCHOMOTOR SKILLS IMPAIRED [None]
  - PYREXIA [None]
  - EYELID OEDEMA [None]
  - CONDITION AGGRAVATED [None]
